FAERS Safety Report 24355895 (Version 2)
Quarter: 2025Q2

REPORT INFORMATION
  Report Type: Spontaneous
  Country: JP (occurrence: JP)
  Receive Date: 20240924
  Receipt Date: 20250421
  Transmission Date: 20250716
  Serious: Yes (Hospitalization, Other)
  Sender: GLAXOSMITHKLINE
  Company Number: JP-GLAXOSMITHKLINE-JP2024JPN115723

PATIENT

DRUGS (2)
  1. LAMICTAL [Suspect]
     Active Substance: LAMOTRIGINE
     Indication: Adjustment disorder
  2. PREDNISOLONE [Concomitant]
     Active Substance: PREDNISOLONE
     Indication: Drug reaction with eosinophilia and systemic symptoms

REACTIONS (6)
  - Drug reaction with eosinophilia and systemic symptoms [Recovering/Resolving]
  - Guillain-Barre syndrome [Unknown]
  - Nervous system disorder [Unknown]
  - Cutaneous symptom [Unknown]
  - Product use in unapproved indication [Unknown]
  - Off label use [Unknown]
